FAERS Safety Report 8477924-1 (Version None)
Quarter: 2012Q2

REPORT INFORMATION
  Report Type: 
  Country: None (occurrence: None)
  Receive Date: 20120629
  Receipt Date: 20120625
  Transmission Date: 20120825
  Serious: Yes (Other)
  Sender: FDA-Public Use
  Company Number: US-PFIZER INC-2012125407

PATIENT
  Sex: Female
  Weight: 47.619 kg

DRUGS (6)
  1. PROVENTIL-HFA [Concomitant]
     Indication: EMPHYSEMA
     Dosage: UNK
  2. CELEBREX [Concomitant]
     Dosage: UNK
  3. IPRATROPIUM BROMIDE AND ALBUTEROL SULFATE [Concomitant]
     Indication: EMPHYSEMA
     Dosage: [IPRATROPRIUM BROMIDE ^05^]/ [ALBUTEROL 3 MG], DAILY
  4. ALENDRONATE SODIUM [Concomitant]
     Indication: BONE DISORDER
     Dosage: 70 MG, WEEKLY ON SATURDAY
  5. OXYGEN [Concomitant]
     Dosage: UNK
  6. CADUET [Suspect]
     Indication: HYPERTENSION
     Dosage: [AMLODIPINE BESILATE 5 MG]/ [ATORVASTATIN CALCIUM 40 MG], DAILY
     Dates: start: 20070101, end: 20120511

REACTIONS (3)
  - WEIGHT DECREASED [None]
  - GOITRE [None]
  - THYROID DISORDER [None]
